FAERS Safety Report 15980001 (Version 1)
Quarter: 2019Q1

REPORT INFORMATION
  Report Type: Spontaneous
  Country: FR (occurrence: FR)
  Receive Date: 20190219
  Receipt Date: 20190219
  Transmission Date: 20190418
  Serious: Yes (Hospitalization)
  Sender: FDA-Public Use
  Company Number: FR-ZYDUS-033487

PATIENT
  Age: 68 Year
  Sex: Female

DRUGS (8)
  1. PAROXETINE (CHLORHYDRATE DE) ANHYDRE [Suspect]
     Active Substance: PAROXETINE
     Indication: DEPRESSION
     Route: 048
  2. TROSPIUM [Suspect]
     Active Substance: TROSPIUM
     Indication: URINARY INCONTINENCE
     Route: 048
  3. RIVAROXABAN [Suspect]
     Active Substance: RIVAROXABAN
     Indication: THROMBOSIS PROPHYLAXIS
     Route: 048
     Dates: start: 201806, end: 20190118
  4. LORAZEPAM MYLAN [Suspect]
     Active Substance: LORAZEPAM
     Indication: ANXIETY
     Dosage: 1 MG IN THE MORNING, 2.5MG X 2 IN THE EVENING
     Route: 048
  5. CHOLECALCIFEROL [Suspect]
     Active Substance: CHOLECALCIFEROL
     Indication: VITAMIN D DEFICIENCY
     Route: 048
  6. PARACETAMOL [Suspect]
     Active Substance: ACETAMINOPHEN
     Indication: PAIN
     Route: 048
  7. POTASSIUM [Suspect]
     Active Substance: POTASSIUM
     Indication: HYPOKALAEMIA
     Route: 048
  8. MACROGOL 4000 [Suspect]
     Active Substance: POLYETHYLENE GLYCOL 4000
     Indication: CONSTIPATION
     Dosage: AS NECESSARY
     Route: 048

REACTIONS (2)
  - Cholestasis [Recovering/Resolving]
  - Liver function test abnormal [Recovering/Resolving]

NARRATIVE: CASE EVENT DATE: 20190107
